FAERS Safety Report 9371139 (Version 1)
Quarter: 2013Q2

REPORT INFORMATION
  Report Type: Spontaneous
  Country: BR (occurrence: BR)
  Receive Date: 20130627
  Receipt Date: 20130627
  Transmission Date: 20140414
  Serious: Yes (Other)
  Sender: FDA-Public Use
  Company Number: BR-ACCORD-018156

PATIENT
  Age: 42 Year
  Sex: Female
  Weight: 92.4 kg

DRUGS (6)
  1. IRINOTECAN HYDROCHLORIDE [Suspect]
     Indication: RECTAL CANCER
     Dosage: 3RD CYCLE
     Route: 042
     Dates: start: 20130521, end: 20130521
  2. XELODA [Concomitant]
     Dates: start: 20130321
  3. NOPROSIL [Concomitant]
     Route: 042
     Dates: start: 20130521, end: 20130521
  4. HYDROCORTISONE [Concomitant]
     Route: 042
     Dates: start: 20130521, end: 20130521
  5. NAUSEDRON [Concomitant]
     Route: 042
     Dates: start: 20130521, end: 20130521
  6. DEXAMETHASONE [Concomitant]
     Route: 042
     Dates: start: 20130521, end: 20130521

REACTIONS (3)
  - Suffocation feeling [Recovered/Resolved]
  - Nausea [Recovered/Resolved]
  - Vision blurred [Recovered/Resolved]
